FAERS Safety Report 7901737-X (Version None)
Quarter: 2011Q4

REPORT INFORMATION
  Report Type: 
  Country: None (occurrence: None)
  Receive Date: 20111108
  Receipt Date: 20111022
  Transmission Date: 20120403
  Serious: Yes (Other)
  Sender: FDA-Public Use
  Company Number: CA-JNJFOC-20111010817

PATIENT
  Sex: Male
  Weight: 105 kg

DRUGS (10)
  1. REMICADE [Suspect]
     Indication: COLITIS ULCERATIVE
     Route: 042
     Dates: start: 20100604
  2. REMICADE [Suspect]
     Route: 042
     Dates: start: 20110101
  3. INSULIN [Concomitant]
  4. ALTACE [Concomitant]
  5. FELODIPINE [Concomitant]
  6. HYDROCHLOROTHIAZIDE [Concomitant]
  7. IMURAN [Concomitant]
  8. PREDNISONE [Concomitant]
  9. ASACOL [Concomitant]
  10. LIPITOR [Concomitant]

REACTIONS (2)
  - HEADACHE [None]
  - EYE HAEMORRHAGE [None]
